FAERS Safety Report 14125797 (Version 3)
Quarter: 2018Q1

REPORT INFORMATION
  Report Type: Spontaneous
  Country: IT (occurrence: IT)
  Receive Date: 20171025
  Receipt Date: 20180214
  Transmission Date: 20180508
  Serious: Yes (Hospitalization)
  Sender: FDA-Public Use
  Company Number: IT-SA-2017SA205684

PATIENT
  Age: 95 Year
  Sex: Female

DRUGS (10)
  1. TRANSTEC [Suspect]
     Active Substance: BUPRENORPHINE
     Indication: PAIN
     Dosage: FORM PATCHES
     Route: 062
  2. CALCIUM CARBONATE/COLECALCIFEROL [Concomitant]
     Route: 065
  3. NOVORAPID [Suspect]
     Active Substance: INSULIN ASPART
     Indication: TYPE 2 DIABETES MELLITUS
     Route: 058
     Dates: start: 20170125, end: 20170927
  4. DIURESIX [Concomitant]
     Active Substance: TORSEMIDE
     Dosage: 10 MG
     Route: 065
  5. SOLOSTAR [Suspect]
     Active Substance: DEVICE
     Indication: TYPE 2 DIABETES MELLITUS
  6. CARVEDILOL. [Concomitant]
     Active Substance: CARVEDILOL
     Route: 065
  7. DIABREZIDE [Suspect]
     Active Substance: GLICLAZIDE
     Indication: TYPE 2 DIABETES MELLITUS
     Route: 048
  8. LANTUS SOLOSTAR [Suspect]
     Active Substance: INSULIN GLARGINE
     Indication: TYPE 2 DIABETES MELLITUS
     Route: 058
  9. TRANSTEC [Suspect]
     Active Substance: BUPRENORPHINE
     Indication: PAIN
     Dosage: FORM PATCHES
     Route: 062
  10. FLEXPEN [Concomitant]
     Active Substance: UNSPECIFIED INGREDIENT
     Indication: TYPE 2 DIABETES MELLITUS
     Dates: start: 20170125, end: 20170927

REACTIONS (3)
  - Hypoglycaemic coma [Recovered/Resolved]
  - Toxicity to various agents [Recovered/Resolved]
  - Toxicity to various agents [Recovered/Resolved]

NARRATIVE: CASE EVENT DATE: 20170927
